FAERS Safety Report 19294906 (Version 1)
Quarter: 2021Q2

REPORT INFORMATION
  Report Type: Spontaneous
  Country: FR (occurrence: FR)
  Receive Date: 20210524
  Receipt Date: 20210524
  Transmission Date: 20210717
  Serious: Yes (Death, Hospitalization, Other)
  Sender: FDA-Public Use
  Company Number: FR-VALIDUS PHARMACEUTICALS LLC-FR-2021VAL001210

PATIENT

DRUGS (4)
  1. METFORMIN ARROW [Concomitant]
     Active Substance: METFORMIN HYDROCHLORIDE
     Indication: PRODUCT USED FOR UNKNOWN INDICATION
     Dosage: UNK
  2. CORDARONE [Suspect]
     Active Substance: AMIODARONE HYDROCHLORIDE
     Indication: MYOCARDIAL ISCHAEMIA
     Dosage: 200 MG, QD (1 TABLET IN THE MORNING FOR 3 MONTHS EXCEPT SATURDAY AND SUNDAY)
     Route: 048
     Dates: start: 201709
  3. CORDARONE [Suspect]
     Active Substance: AMIODARONE HYDROCHLORIDE
     Indication: ARRHYTHMIA
  4. FUROSEMIDE. [Suspect]
     Active Substance: FUROSEMIDE
     Indication: PRODUCT USED FOR UNKNOWN INDICATION
     Dosage: 80 MG/ML
     Route: 065

REACTIONS (12)
  - Acute respiratory distress syndrome [Fatal]
  - Orthopnoea [Fatal]
  - Hypoxia [Fatal]
  - Condition aggravated [Fatal]
  - Weight decreased [Fatal]
  - C-reactive protein increased [Fatal]
  - Cardiac arrest [Fatal]
  - Cough [Fatal]
  - Crepitations [Fatal]
  - Multiple organ dysfunction syndrome [Fatal]
  - Asthenia [Fatal]
  - Dyspnoea [Fatal]

NARRATIVE: CASE EVENT DATE: 201709
